FAERS Safety Report 10016672 (Version 2)
Quarter: 2014Q1

REPORT INFORMATION
  Report Type: Spontaneous
  Country: US (occurrence: US)
  Receive Date: 20140317
  Receipt Date: 20140317
  Transmission Date: 20141002
  Serious: Yes (Disabling)
  Sender: FDA-Public Use
  Company Number: US-GE HEALTHCARE MEDICAL DIAGNOSTICS-OSCN-PR-0904S-0210

PATIENT
  Age: 62 Year
  Sex: Male
  Weight: 82.99 kg

DRUGS (14)
  1. OMNISCAN [Suspect]
     Indication: HYPOAESTHESIA
     Route: 042
     Dates: start: 20030310, end: 20030310
  2. OMNISCAN [Suspect]
     Indication: PAIN IN EXTREMITY
     Route: 042
     Dates: start: 20030316, end: 20030316
  3. OMNISCAN [Suspect]
     Indication: PARALYSIS
     Route: 042
     Dates: start: 20030319, end: 20030319
  4. OMNISCAN [Suspect]
     Indication: POST LAMINECTOMY SYNDROME
     Route: 042
     Dates: start: 20030416, end: 20030416
  5. OMNISCAN [Suspect]
     Indication: ABSCESS
     Route: 042
     Dates: start: 20030513, end: 20030513
  6. OMNISCAN [Suspect]
     Indication: CHEST PAIN
  7. OMNISCAN [Suspect]
     Indication: PAIN
  8. OMNISCAN [Suspect]
     Indication: INDURATION
  9. OMNISCAN [Suspect]
     Indication: SWELLING
  10. OMNISCAN [Suspect]
     Indication: RENAL FAILURE ACUTE
  11. OMNISCAN [Suspect]
     Indication: PARAPLEGIA
  12. OMNISCAN [Suspect]
     Indication: OSTEOMYELITIS
  13. OMNISCAN [Suspect]
     Indication: PARASPINAL ABSCESS
  14. GADOLINIUM (UNSPECIFIED) [Suspect]
     Indication: PARAPLEGIA
     Route: 042
     Dates: start: 20030620, end: 20030620

REACTIONS (1)
  - Nephrogenic systemic fibrosis [Not Recovered/Not Resolved]
